FAERS Safety Report 9888098 (Version 1)
Quarter: 2014Q1

REPORT INFORMATION
  Report Type: Spontaneous
  Country: IE (occurrence: IE)
  Receive Date: 20140211
  Receipt Date: 20140211
  Transmission Date: 20141002
  Serious: Yes (Other)
  Sender: FDA-Public Use
  Company Number: IE-WATSON-2014-02043

PATIENT
  Age: 12 Year
  Sex: Male

DRUGS (2)
  1. METHYLPHENIDATE HYDROCHLORIDE (WATSON LABORATORIES) [Suspect]
     Indication: ATTENTION DEFICIT/HYPERACTIVITY DISORDER
     Dosage: 18 MG, QAM
     Route: 048
  2. METHYLPHENIDATE HYDROCHLORIDE (WATSON LABORATORIES) [Suspect]
     Dosage: 36 MG DAILY, EVERY DAY EXCEPT FOR SUNDAYS
     Route: 048

REACTIONS (1)
  - Priapism [Recovered/Resolved]
